FAERS Safety Report 8207707-9 (Version None)
Quarter: 2012Q1

REPORT INFORMATION
  Report Type: 
  Country: None (occurrence: None)
  Receive Date: 20120313
  Receipt Date: 20120313
  Transmission Date: 20120608
  Serious: No
  Sender: FDA-Public Use
  Company Number: None

PATIENT
  Sex: Male
  Weight: 66 kg

DRUGS (1)
  1. TEMOZOLOMIDE [Suspect]
     Dosage: 1425 MG

REACTIONS (1)
  - THROMBOCYTOPENIA [None]
